FAERS Safety Report 10013991 (Version 2)
Quarter: 2014Q2

REPORT INFORMATION
  Report Type: Spontaneous
  Country: GB (occurrence: GB)
  Receive Date: 20140317
  Receipt Date: 20140421
  Transmission Date: 20141212
  Serious: Yes (Other)
  Sender: FDA-Public Use
  Company Number: GB-JNJFOC-20140303031

PATIENT
  Sex: Female
  Weight: 109.8 kg

DRUGS (4)
  1. STELARA [Suspect]
     Indication: ERYTHRODERMIC PSORIASIS
     Route: 058
     Dates: start: 201302
  2. STELARA [Suspect]
     Indication: PSORIATIC ARTHROPATHY
     Route: 058
     Dates: start: 201302
  3. STELARA [Suspect]
     Indication: PSORIASIS
     Route: 058
     Dates: start: 201302
  4. METHOTREXATE [Concomitant]
     Route: 065
     Dates: start: 20100527

REACTIONS (2)
  - Erythrodermic psoriasis [Unknown]
  - Psoriasis [Unknown]
